FAERS Safety Report 24532006 (Version 1)
Quarter: 2024Q4

REPORT INFORMATION
  Report Type: Spontaneous
  Country: GB (occurrence: GB)
  Receive Date: 20241022
  Receipt Date: 20241022
  Transmission Date: 20250115
  Serious: Yes (Hospitalization, Disabling, Other)
  Sender: TEVA
  Company Number: None

PATIENT

DRUGS (10)
  1. FILGRASTIM [Suspect]
     Active Substance: FILGRASTIM
     Indication: Neutropenia
     Dosage: 480MCG
     Route: 065
     Dates: start: 20241009, end: 20241013
  2. DEXAMETHASONE [Concomitant]
     Active Substance: DEXAMETHASONE
  3. VINBLASTINE [Concomitant]
     Active Substance: VINBLASTINE
  4. METOCLOPRAMIDE [Concomitant]
     Active Substance: METOCLOPRAMIDE
  5. ACYCLOVIR [Concomitant]
     Active Substance: ACYCLOVIR
     Dosage: ACCORD-UK
  6. ONDANSETRON [Concomitant]
     Active Substance: ONDANSETRON
  7. DACARBAZINE [Concomitant]
     Active Substance: DACARBAZINE
  8. BLEOMYCIN [Concomitant]
     Active Substance: BLEOMYCIN SULFATE
  9. DOXORUBICIN [Concomitant]
     Active Substance: DOXORUBICIN
     Indication: Chemotherapy
  10. COTRIMOXAZOLE [Concomitant]
     Active Substance: SULFAMETHOXAZOLE\TRIMETHOPRIM

REACTIONS (2)
  - Pain [Not Recovered/Not Resolved]
  - Muscle spasms [Not Recovered/Not Resolved]

NARRATIVE: CASE EVENT DATE: 20241013
